FAERS Safety Report 7648126-3 (Version None)
Quarter: 2011Q3

REPORT INFORMATION
  Report Type: 
  Country: None (occurrence: None)
  Receive Date: 20110726
  Receipt Date: 20110712
  Transmission Date: 20111222
  Serious: Yes (Other)
  Sender: FDA-Public Use
  Company Number: FR-1187117

PATIENT
  Sex: Female

DRUGS (3)
  1. LUMIGAN [Concomitant]
  2. TRUSOPT [Concomitant]
  3. BETOPTIC [Suspect]
     Dosage: OPHTHALMIC
     Route: 047

REACTIONS (5)
  - RAYNAUD'S PHENOMENON [None]
  - MYALGIA [None]
  - SUICIDAL IDEATION [None]
  - DEPRESSION [None]
  - CHEST DISCOMFORT [None]
